FAERS Safety Report 6617749-2 (Version None)
Quarter: 2010Q1

REPORT INFORMATION
  Report Type: 
  Country: None (occurrence: None)
  Receive Date: 20100308
  Receipt Date: 20100223
  Transmission Date: 20100710
  Serious: Yes (Other)
  Sender: FDA-Public Use
  Company Number: PHEH2009US11229

PATIENT
  Sex: Female

DRUGS (1)
  1. RECLAST [Suspect]
     Dosage: UNK
     Dates: start: 20090824, end: 20090928

REACTIONS (4)
  - ENDODONTIC PROCEDURE [None]
  - PAIN IN JAW [None]
  - TOOTH INFECTION [None]
  - TOOTHACHE [None]
